FAERS Safety Report 9081456 (Version 1)
Quarter: 2013Q1

REPORT INFORMATION
  Report Type: Report from Study
  Country: US (occurrence: US)
  Receive Date: 20130130
  Receipt Date: 20130130
  Transmission Date: 20140127
  Serious: No
  Sender: FDA-Public Use
  Company Number: US-ABBOTT-12P-163-0959416-00

PATIENT
  Age: 59 Year
  Sex: Female

DRUGS (8)
  1. HUMIRA 40 MG/0.8 ML PEN [Suspect]
     Indication: PRODUCT USED FOR UNKNOWN INDICATION
  2. METFORMIN [Concomitant]
     Indication: DIABETES MELLITUS
  3. VICTOZA [Concomitant]
     Indication: DIABETES MELLITUS
     Dosage: 1.2MCG DAILY
     Route: 050
  4. LANTUS INSULIN [Concomitant]
     Indication: DIABETES MELLITUS
     Dosage: 30 UNITS DAILY AT BEDTIME
  5. ADVAIR [Concomitant]
     Indication: ASTHMA
     Dosage: 500/50MG DAILY
     Route: 055
  6. ALDACTONE [Concomitant]
     Indication: OEDEMA PERIPHERAL
     Dosage: DAILY
  7. PRISTIQ [Concomitant]
     Indication: DEPRESSION
     Dosage: 50MG DAILY
  8. ARMOUR THYROID [Concomitant]
     Indication: BLOOD THYROID STIMULATING HORMONE DECREASED
     Dosage: 120MG DAILY

REACTIONS (2)
  - Monoplegia [Recovered/Resolved]
  - Wrong technique in drug usage process [Recovered/Resolved]
